FAERS Safety Report 25389126 (Version 1)
Quarter: 2025Q2

REPORT INFORMATION
  Report Type: Spontaneous
  Country: US (occurrence: US)
  Receive Date: 20250603
  Receipt Date: 20250603
  Transmission Date: 20250717
  Serious: No
  Sender: AMGEN
  Company Number: US-AMGEN-USASP2025106728

PATIENT
  Age: 52 Year
  Sex: Female

DRUGS (10)
  1. OTEZLA [Suspect]
     Active Substance: APREMILAST
     Indication: Product used for unknown indication
     Dosage: 30 MILLIGRAM, BID
     Route: 048
     Dates: start: 20240424
  2. AIMOVIG [Suspect]
     Active Substance: ERENUMAB-AOOE
     Indication: Product used for unknown indication
     Route: 065
  3. BACLOFEN [Concomitant]
     Active Substance: BACLOFEN
  4. IPRATROPIUM [Concomitant]
     Active Substance: IPRATROPIUM
  5. LORATADINE [Concomitant]
     Active Substance: LORATADINE
  6. METHYLPREDNISOLONE [Concomitant]
     Active Substance: METHYLPREDNISOLONE
  7. METOPROLOL SUCCINATE [Concomitant]
     Active Substance: METOPROLOL SUCCINATE
  8. NAPROXEN [Concomitant]
     Active Substance: NAPROXEN
  9. NURTEC ODT [Concomitant]
     Active Substance: RIMEGEPANT SULFATE
  10. TRAZODONE [Concomitant]
     Active Substance: TRAZODONE HYDROCHLORIDE

REACTIONS (2)
  - Rash [Unknown]
  - Discomfort [Unknown]
